FAERS Safety Report 8920416 (Version 1)
Quarter: 2012Q4

REPORT INFORMATION
  Report Type: 
  Country: IT (occurrence: IT)
  Receive Date: 20121121
  Receipt Date: 20121121
  Transmission Date: 20130627
  Serious: Yes (Hospitalization)
  Sender: FDA-Public Use
  Company Number: IT-BAYER-2012-120205

PATIENT
  Age: 70 Year
  Sex: Male

DRUGS (10)
  1. CARDIOASPIRIN [Suspect]
     Dosage: 300 mg, ONCE
     Route: 048
     Dates: start: 20121107, end: 20121107
  2. CARDIOASPIRIN [Suspect]
     Dosage: UNK
  3. TRIAZOLAM [Suspect]
     Indication: MULTIPLE DRUG OVERDOSE INTENTIONAL
     Dosage: 5 mg, ONCE
     Route: 048
     Dates: start: 20121107, end: 20121107
  4. ETHANOL [Suspect]
  5. HYDROCHLOROTHIAZIDE W/QUINAPRIL [Concomitant]
     Dosage: Daily dose 32.5 mg
     Route: 048
  6. TORVAST [Concomitant]
     Dosage: Daily dose 20 mg
     Route: 048
  7. NITROGLYCERIN [Concomitant]
  8. DULOXETINE [Concomitant]
  9. MIRTAZAPINE [Concomitant]
  10. CARVEDILOL ACTAVIS [Concomitant]

REACTIONS (4)
  - Rhonchi [Recovering/Resolving]
  - Hypokalaemia [Recovering/Resolving]
  - Sopor [Recovering/Resolving]
  - Intentional overdose [Recovered/Resolved]
